FAERS Safety Report 19590087 (Version 1)
Quarter: 2021Q3

REPORT INFORMATION
  Report Type: Spontaneous
  Country: US (occurrence: US)
  Receive Date: 20210721
  Receipt Date: 20210721
  Transmission Date: 20211014
  Serious: No
  Sender: FDA-Public Use
  Company Number: US-SA-2021SA235376

PATIENT
  Sex: Female

DRUGS (1)
  1. DUPIXENT [Suspect]
     Active Substance: DUPILUMAB
     Indication: ILLNESS
     Dosage: 300 MG, QOW
     Route: 058

REACTIONS (6)
  - Oral herpes [Unknown]
  - Wheezing [Unknown]
  - Chest discomfort [Unknown]
  - Dyspnoea [Unknown]
  - Cough [Unknown]
  - Product use in unapproved indication [Unknown]
